FAERS Safety Report 11526130 (Version 2)
Quarter: 2016Q3

REPORT INFORMATION
  Report Type: Spontaneous
  Country: US (occurrence: US)
  Receive Date: 20150918
  Receipt Date: 20160718
  Transmission Date: 20161109
  Serious: Yes (Death, Other)
  Sender: FDA-Public Use
  Company Number: US-TAKEDA-TPA2012A08042

PATIENT

DRUGS (1)
  1. ACTOS [Suspect]
     Active Substance: PIOGLITAZONE HYDROCHLORIDE
     Indication: TYPE 2 DIABETES MELLITUS
     Dosage: 30 MG, QD
     Route: 048
     Dates: start: 200707, end: 201104

REACTIONS (4)
  - Death [Fatal]
  - Cerebrovascular accident [Unknown]
  - Cardiac failure congestive [Unknown]
  - Bladder cancer [Unknown]

NARRATIVE: CASE EVENT DATE: 201008
